FAERS Safety Report 14353627 (Version 3)
Quarter: 2018Q1

REPORT INFORMATION
  Report Type: Spontaneous
  Country: JP (occurrence: JP)
  Receive Date: 20180105
  Receipt Date: 20180213
  Transmission Date: 20180509
  Serious: Yes (Other)
  Sender: FDA-Public Use
  Company Number: JP-009507513-1708JPN002203

PATIENT
  Age: 52 Year
  Sex: Female

DRUGS (21)
  1. CONSTAN [Interacting]
     Active Substance: ALPRAZOLAM
     Indication: PRODUCT USED FOR UNKNOWN INDICATION
     Dosage: 1.2 MG, UNK
     Route: 048
     Dates: start: 20140318, end: 20140319
  2. OXYCONTIN [Suspect]
     Active Substance: OXYCODONE HYDROCHLORIDE
     Dosage: 100 MG, UNK
     Route: 048
     Dates: start: 20140314, end: 20140413
  3. LYRICA [Concomitant]
     Active Substance: PREGABALIN
     Dosage: UNK
     Dates: start: 20140310, end: 20140521
  4. LANDSEN [Concomitant]
     Active Substance: CLONAZEPAM
     Dosage: UNK
     Dates: start: 20140310, end: 20140323
  5. FOSAPREPITANT DIMEGLUMINE. [Suspect]
     Active Substance: FOSAPREPITANT DIMEGLUMINE
     Indication: PROPHYLAXIS OF NAUSEA AND VOMITING
     Dosage: DAILY DOSE UNKNOWN
     Route: 041
     Dates: start: 20140414, end: 20140414
  6. OXYCONTIN [Suspect]
     Active Substance: OXYCODONE HYDROCHLORIDE
     Indication: CANCER PAIN
     Dosage: 20 MG, UNK
     Route: 048
     Dates: start: 20140221, end: 20140313
  7. NOVAMIN (PROCHLORPERAZINE MALEATE) [Concomitant]
     Active Substance: PROCHLORPERAZINE MALEATE
     Dosage: UNK
     Dates: start: 20140221, end: 20140403
  8. MONTELUKAST SODIUM. [Concomitant]
     Active Substance: MONTELUKAST SODIUM
     Dosage: UNK
     Dates: start: 20140221, end: 20140529
  9. GRANISETRON [Concomitant]
     Active Substance: GRANISETRON
     Dosage: UNK
     Dates: start: 20140318, end: 20140318
  10. ALIMTA [Concomitant]
     Active Substance: PEMETREXED DISODIUM
     Dosage: UNK
     Dates: start: 20140318, end: 20140318
  11. SENNOSIDES. [Concomitant]
     Active Substance: SENNOSIDES
     Dosage: UNK
     Dates: start: 20140224, end: 20140520
  12. FOSAPREPITANT DIMEGLUMINE. [Suspect]
     Active Substance: FOSAPREPITANT DIMEGLUMINE
     Indication: PROPHYLAXIS OF NAUSEA AND VOMITING
     Dosage: 150 MG, UNK
     Route: 041
     Dates: start: 20140318, end: 20140318
  13. MAGNESIUM OXIDE. [Concomitant]
     Active Substance: MAGNESIUM OXIDE
     Dosage: UNK
     Dates: start: 20140228, end: 20140403
  14. PANVITAN [Concomitant]
     Dosage: UNK
     Dates: start: 20140310, end: 20140515
  15. OXINORM (OXYCODONE HYDROCHLORIDE) [Concomitant]
     Active Substance: OXYCODONE HYDROCHLORIDE
     Dosage: UNK
     Dates: start: 20140221
  16. OXYCONTIN [Suspect]
     Active Substance: OXYCODONE HYDROCHLORIDE
     Dosage: 120 MG, UNK
     Route: 048
     Dates: start: 20140414
  17. RANDA [Concomitant]
     Active Substance: CISPLATIN
     Dosage: UNK
     Dates: start: 20140318, end: 20140318
  18. CELECOX [Concomitant]
     Active Substance: CELECOXIB
     Dosage: UNK
     Dates: start: 20140219, end: 20140521
  19. DEXART [Concomitant]
     Active Substance: DEXAMETHASONE SODIUM PHOSPHATE
     Dosage: UNK
     Dates: start: 20140318, end: 20140318
  20. DOMPERIDONE [Concomitant]
     Active Substance: DOMPERIDONE
     Dosage: UNK
     Dates: start: 20140219, end: 20140529
  21. TAKEPRON [Concomitant]
     Active Substance: LANSOPRAZOLE
     Dosage: UNK
     Dates: start: 20140219, end: 20140529

REACTIONS (2)
  - Drug interaction [Recovered/Resolved]
  - Respiratory depression [Recovered/Resolved]

NARRATIVE: CASE EVENT DATE: 20140319
